FAERS Safety Report 4731555-5 (Version None)
Quarter: 2005Q3

REPORT INFORMATION
  Report Type: 
  Country: None (occurrence: None)
  Receive Date: 20050721
  Receipt Date: 20050407
  Transmission Date: 20060218
  Serious: Yes (Other)
  Sender: FDA-Public Use
  Company Number: 2005061760

PATIENT
  Sex: Male
  Weight: 83.9154 kg

DRUGS (7)
  1. INSPRA [Suspect]
     Indication: HYPERTENSION
     Dosage: 50 MG (50 MG), ORAL;  25 MG, ORAL
     Route: 048
     Dates: start: 20050101, end: 20050326
  2. INSPRA [Suspect]
     Indication: HYPERTENSION
     Dosage: 50 MG (50 MG), ORAL;  25 MG, ORAL
     Route: 048
     Dates: start: 20050326, end: 20050402
  3. PREDNISONE TAB [Suspect]
     Indication: RHEUMATOID ARTHRITIS
     Dosage: 5 MG (5 MG, 1 IN 1 D), ORAL
     Route: 048
     Dates: start: 19850101
  4. VIAGRA [Suspect]
     Indication: ERECTILE DYSFUNCTION
     Dosage: (50 MG AS NECESSARY), ORAL;  100 MG (100 MG), OPHTHALMIC
     Route: 048
     Dates: start: 20050407, end: 20050407
  5. CIALIS [Suspect]
     Indication: ERECTILE DYSFUNCTION
     Dosage: ORAL
     Route: 048
  6. ATENOLOL [Suspect]
     Indication: HYPERTENSION
  7. COZAAR [Suspect]
     Indication: HYPERTENSION
     Dosage: ORAL
     Route: 048
     Dates: end: 20050326

REACTIONS (5)
  - CONDITION AGGRAVATED [None]
  - DRUG INEFFECTIVE [None]
  - ERECTILE DYSFUNCTION [None]
  - HEADACHE [None]
  - SOMNOLENCE [None]
